FAERS Safety Report 9919476 (Version 4)
Quarter: 2014Q2

REPORT INFORMATION
  Report Type: Spontaneous
  Country: US (occurrence: US)
  Receive Date: 20140224
  Receipt Date: 20140602
  Transmission Date: 20141212
  Serious: Yes (Hospitalization, Other)
  Sender: FDA-Public Use
  Company Number: US-BAYER-2014-026826

PATIENT
  Age: 22 Year
  Sex: Female
  Weight: 68.03 kg

DRUGS (1)
  1. MIRENA [Suspect]
     Indication: CONTRACEPTION
     Dosage: 20 MCG/24HR, CONT
     Route: 015
     Dates: start: 20120718, end: 20130227

REACTIONS (12)
  - Uterine perforation [None]
  - Device breakage [None]
  - Pelvic pain [None]
  - Device difficult to use [None]
  - Injury [None]
  - Emotional distress [None]
  - Quality of life decreased [None]
  - Pelvic discomfort [None]
  - Complication of device removal [None]
  - Device defective [None]
  - Off label use [None]
  - Anxiety [None]
